FAERS Safety Report 5967475-8 (Version None)
Quarter: 2008Q4

REPORT INFORMATION
  Report Type: 
  Country: None (occurrence: None)
  Receive Date: 20081125
  Receipt Date: 20081113
  Transmission Date: 20090506
  Serious: Yes (Hospitalization, Other)
  Sender: FDA-Public Use
  Company Number: US-PFIZER INC-2008096236

PATIENT

DRUGS (1)
  1. LYRICA [Suspect]

REACTIONS (1)
  - PNEUMONIA [None]
